FAERS Safety Report 8166769-8 (Version None)
Quarter: 2012Q1

REPORT INFORMATION
  Report Type: 
  Country: None (occurrence: None)
  Receive Date: 20120103
  Receipt Date: 20111020
  Transmission Date: 20120608
  Serious: No
  Sender: FDA-Public Use
  Company Number: AE-2011-002543

PATIENT
  Age: 50 Year
  Sex: Male
  Weight: 76.2043 kg

DRUGS (6)
  1. INCIVEK [Suspect]
     Dosage: (3 IN 1 D), ORAL
     Route: 048
     Dates: start: 20111019
  2. ES TYLENOL (PARACETAMOL) [Concomitant]
  3. PROCARDIA [Concomitant]
  4. RIBAVIRIN [Concomitant]
  5. PEGASYS [Concomitant]
  6. OMEPRAZOLE [Concomitant]

REACTIONS (1)
  - HEADACHE [None]
